FAERS Safety Report 22001450 (Version 3)
Quarter: 2023Q1

REPORT INFORMATION
  Report Type: Report from Study
  Country: CA (occurrence: CA)
  Receive Date: 20230216
  Receipt Date: 20230228
  Transmission Date: 20230417
  Serious: Yes (Hospitalization, Other)
  Sender: FDA-Public Use
  Company Number: CA-MYLANLABS-2023M1016857

PATIENT
  Sex: Male
  Weight: 69.2 kg

DRUGS (1)
  1. OGIVRI [Suspect]
     Active Substance: TRASTUZUMAB-DKST
     Indication: Metastatic gastric cancer
     Dosage: 277 MILLIGRAM, BIWEEKLY
     Route: 042
     Dates: start: 20230119

REACTIONS (2)
  - Metastatic gastric cancer [Unknown]
  - Disease progression [Unknown]
